FAERS Safety Report 5708900-7 (Version None)
Quarter: 2008Q2

REPORT INFORMATION
  Report Type: 
  Country: None (occurrence: None)
  Receive Date: 20080416
  Receipt Date: 20080403
  Transmission Date: 20081010
  Serious: Yes (Other)
  Sender: FDA-Public Use
  Company Number: CC08-319

PATIENT
  Age: 64 Year
  Sex: Male

DRUGS (1)
  1. PRIMATENE MIST [Suspect]
     Indication: ASTHMA
     Dosage: 1 ACTUATION AS NEEDED
     Dates: start: 20080201, end: 20080201

REACTIONS (1)
  - DRUG INEFFECTIVE [None]
